FAERS Safety Report 14702521 (Version 1)
Quarter: 2018Q2

REPORT INFORMATION
  Report Type: Spontaneous
  Country: FR (occurrence: FR)
  Receive Date: 20180401
  Receipt Date: 20180401
  Transmission Date: 20180711
  Serious: Yes (Other)
  Sender: FDA-Public Use
  Company Number: FR-MERCK KGAA-2044848

PATIENT
  Age: 72 Year
  Sex: Female

DRUGS (1)
  1. NOVOTHYROX [Suspect]
     Active Substance: LEVOTHYROXINE SODIUM
     Indication: PRODUCT USED FOR UNKNOWN INDICATION

REACTIONS (24)
  - Eye pruritus [None]
  - Nervousness [None]
  - Irritability [None]
  - Chest pain [None]
  - Pain [None]
  - Loss of personal independence in daily activities [None]
  - Social avoidant behaviour [None]
  - Myalgia [None]
  - Diabetes mellitus [None]
  - Muscle spasms [None]
  - Weight increased [None]
  - Dyspnoea [None]
  - Arthralgia [None]
  - Headache [None]
  - Gastrointestinal motility disorder [None]
  - Diarrhoea [None]
  - Vertigo [None]
  - Fatigue [None]
  - Asthenia [None]
  - Alopecia [None]
  - Chills [None]
  - Apathy [None]
  - Serum ferritin decreased [None]
  - Insomnia [None]

NARRATIVE: CASE EVENT DATE: 20170925
